FAERS Safety Report 12954975 (Version 6)
Quarter: 2017Q2

REPORT INFORMATION
  Report Type: Report from Study
  Country: US (occurrence: US)
  Receive Date: 20161118
  Receipt Date: 20170606
  Transmission Date: 20170830
  Serious: Yes (Hospitalization, Other)
  Sender: FDA-Public Use
  Company Number: US-JNJFOC-20150700838

PATIENT
  Age: 72 Year
  Sex: Male

DRUGS (8)
  1. STOOL SOFTENER (DOCUSATE) [Suspect]
     Active Substance: DOCUSATE
     Indication: CONSTIPATION
     Route: 065
     Dates: start: 2016
  2. DONEPEZIL. [Concomitant]
     Active Substance: DONEPEZIL
  3. TAMSULOSIN [Concomitant]
     Active Substance: TAMSULOSIN
  4. IMBRUVICA [Suspect]
     Active Substance: IBRUTINIB
     Indication: CHRONIC LYMPHOCYTIC LEUKAEMIA
     Route: 065
     Dates: start: 20140901
  5. MULTIVITAMINS [Concomitant]
     Active Substance: VITAMINS
  6. FINASTERIDE. [Concomitant]
     Active Substance: FINASTERIDE
  7. NAMENDA [Concomitant]
     Active Substance: MEMANTINE HYDROCHLORIDE
  8. IMBRUVICA [Suspect]
     Active Substance: IBRUTINIB
     Indication: CHRONIC LYMPHOCYTIC LEUKAEMIA
     Route: 065
     Dates: start: 2014, end: 2014

REACTIONS (19)
  - Nausea [Not Recovered/Not Resolved]
  - Sepsis [Unknown]
  - Constipation [Not Recovered/Not Resolved]
  - Localised infection [Not Recovered/Not Resolved]
  - Gastrointestinal disorder [Unknown]
  - Drug dose omission [Recovered/Resolved]
  - Platelet count decreased [Recovering/Resolving]
  - Wrong technique in product usage process [Recovered/Resolved]
  - Fall [Unknown]
  - Dementia Alzheimer^s type [Not Recovered/Not Resolved]
  - Blood bilirubin increased [Unknown]
  - Incontinence [Unknown]
  - Dehydration [Recovered/Resolved]
  - Squamous cell carcinoma [Recovering/Resolving]
  - Diarrhoea [Not Recovered/Not Resolved]
  - Staphylococcal infection [Not Recovered/Not Resolved]
  - Lymphadenopathy [Not Recovered/Not Resolved]
  - Vomiting [Not Recovered/Not Resolved]
  - Abdominal discomfort [Unknown]

NARRATIVE: CASE EVENT DATE: 2014
